FAERS Safety Report 5910244-5 (Version None)
Quarter: 2008Q4

REPORT INFORMATION
  Report Type: 
  Country: None (occurrence: None)
  Receive Date: 20081007
  Receipt Date: 20071031
  Transmission Date: 20090506
  Serious: No
  Sender: FDA-Public Use
  Company Number: US-ASTRAZENECA-2007UW25228

PATIENT
  Age: 76 Year
  Sex: Female
  Weight: 52.2 kg

DRUGS (3)
  1. ARIMIDEX [Suspect]
     Indication: BREAST CANCER RECURRENT
     Route: 048
     Dates: start: 20020101
  2. FOSAMAX PLUS D [Concomitant]
  3. BENEMOL [Concomitant]

REACTIONS (3)
  - BLOOD PRESSURE INCREASED [None]
  - DENTAL CARIES [None]
  - OSTEOPOROSIS [None]
